FAERS Safety Report 5782591-1 (Version None)
Quarter: 2008Q2

REPORT INFORMATION
  Report Type: 
  Country: None (occurrence: None)
  Receive Date: 20080624
  Receipt Date: 20080611
  Transmission Date: 20081010
  Serious: Yes (Hospitalization, Disabling)
  Sender: FDA-Public Use
  Company Number: GB-PFIZER INC-2008050002

PATIENT
  Age: 63 Year
  Sex: Male
  Weight: 54 kg

DRUGS (12)
  1. LYRICA [Suspect]
     Indication: PAIN
     Route: 048
     Dates: start: 20080414, end: 20080506
  2. MORPHINE SULFATE [Concomitant]
  3. AMITRIPTYLINE HCL [Concomitant]
  4. CITALOPRAM HYDROBROMIDE [Concomitant]
  5. ACETAMINOPHEN W/ CODEINE [Concomitant]
  6. DICLOFENAC SODIUM [Concomitant]
  7. LACTULOSE [Concomitant]
  8. METOCLOPRAMIDE [Concomitant]
  9. OMEPRAZOLE [Concomitant]
  10. ORAMORPH SR [Concomitant]
  11. TAMSULOSIN HCL [Concomitant]
  12. ZOPICLONE [Concomitant]

REACTIONS (3)
  - ANAL FISTULA [None]
  - OEDEMA PERIPHERAL [None]
  - POST PROCEDURAL HAEMORRHAGE [None]
